FAERS Safety Report 22075670 (Version 12)
Quarter: 2023Q2

REPORT INFORMATION
  Report Type: Spontaneous
  Country: CA (occurrence: CA)
  Receive Date: 20230308
  Receipt Date: 20230622
  Transmission Date: 20230722
  Serious: Yes (Hospitalization, Disabling, Other)
  Sender: FDA-Public Use
  Company Number: CA-PFIZER INC-PV202200129162

PATIENT
  Age: 33 Year
  Sex: Female
  Weight: 70 kg

DRUGS (5)
  1. ZIRABEV [Suspect]
     Active Substance: BEVACIZUMAB-BVZR
     Indication: Ependymoma
     Dosage: 15 MG/KG (1050 MG), EVERY 3 WEEKS
     Route: 042
     Dates: start: 20230208
  2. ZIRABEV [Suspect]
     Active Substance: BEVACIZUMAB-BVZR
     Dosage: 15 MG/KG (1050 MG), EVERY 3 WEEKS
     Route: 042
     Dates: start: 20230308
  3. ZIRABEV [Suspect]
     Active Substance: BEVACIZUMAB-BVZR
     Dosage: 1050 MG
     Route: 042
     Dates: start: 20230329
  4. ZIRABEV [Suspect]
     Active Substance: BEVACIZUMAB-BVZR
     Dosage: 1050 MG, EVERY 3 WEEKS
     Route: 042
     Dates: start: 20230503
  5. ZIRABEV [Suspect]
     Active Substance: BEVACIZUMAB-BVZR
     Dosage: 1050 MG
     Route: 042
     Dates: start: 20230524

REACTIONS (18)
  - Kidney infection [Unknown]
  - Brain neoplasm [Unknown]
  - Wheelchair user [Unknown]
  - Off label use [Unknown]
  - Bone neoplasm [Unknown]
  - Neoplasm progression [Unknown]
  - Blood pressure fluctuation [Unknown]
  - Blood pressure systolic increased [Unknown]
  - Heart rate increased [Unknown]
  - Dyspepsia [Unknown]
  - Fatigue [Unknown]
  - Nasopharyngitis [Unknown]
  - Malaise [Unknown]
  - Oral pain [Unknown]
  - Urinary tract infection [Unknown]
  - Anxiety [Unknown]
  - Panic attack [Unknown]
  - Mucosal inflammation [Unknown]

NARRATIVE: CASE EVENT DATE: 20230101
